FAERS Safety Report 6840654-3 (Version None)
Quarter: 2010Q3

REPORT INFORMATION
  Report Type: 
  Country: None (occurrence: None)
  Receive Date: 20100713
  Receipt Date: 20100713
  Transmission Date: 20110219
  Serious: No
  Sender: FDA-Public Use
  Company Number: None

PATIENT
  Age: 44 Year
  Sex: Female
  Weight: 72.5755 kg

DRUGS (8)
  1. LYRICA [Suspect]
     Indication: BACK PAIN
     Dosage: 25 MG, 50 MG, 75 MG BID PO
     Route: 048
     Dates: start: 20070715, end: 20071126
  2. LYRICA [Suspect]
     Dosage: SUBDERMAL
     Route: 059
  3. CITALOPRAM HYDROBROMIDE [Concomitant]
  4. AZAMCORT INH [Concomitant]
  5. NABUMETONE [Concomitant]
  6. NABUMETONE [Concomitant]
  7. TRAMADOL [Concomitant]
  8. CYCLOBENZAPRINE [Concomitant]

REACTIONS (3)
  - CLUMSINESS [None]
  - DYSKINESIA [None]
  - FEELING ABNORMAL [None]
